FAERS Safety Report 15370156 (Version 1)
Quarter: 2018Q3

REPORT INFORMATION
  Report Type: Spontaneous
  Country: US (occurrence: US)
  Receive Date: 20180911
  Receipt Date: 20180911
  Transmission Date: 20181010
  Serious: No
  Sender: FDA-Public Use
  Company Number: US-MYLANLABS-2018M1061977

PATIENT
  Sex: Female
  Weight: 86 kg

DRUGS (1)
  1. FENTANYL TRANSDERMAL SYSTEM [Suspect]
     Active Substance: FENTANYL
     Indication: PAIN
     Dosage: UNK (5 DAYS)
     Route: 062
     Dates: start: 20160101

REACTIONS (2)
  - Inappropriate schedule of drug administration [Unknown]
  - Product availability issue [Unknown]
